FAERS Safety Report 6766039-6 (Version None)
Quarter: 2010Q2

REPORT INFORMATION
  Report Type: 
  Country: None (occurrence: None)
  Receive Date: 20100611
  Receipt Date: 20100602
  Transmission Date: 20101027
  Serious: Yes (Hospitalization)
  Sender: FDA-Public Use
  Company Number: A0864198A

PATIENT
  Sex: Male
  Weight: 86 kg

DRUGS (5)
  1. DIGOXIN [Suspect]
     Dosage: .25MG PER DAY
     Dates: start: 20080101
  2. FUROSEMIDE [Concomitant]
     Dosage: 1TAB THREE TIMES PER DAY
     Dates: start: 20080101
  3. CARVEDILOL [Concomitant]
     Dosage: 1TAB PER DAY
     Dates: start: 20080101
  4. SPIRONOLACTONE [Concomitant]
     Dosage: 1TAB PER DAY
     Dates: start: 20080101
  5. ENALAPRIL [Concomitant]
     Dosage: 1TAB PER DAY
     Dates: start: 20080101

REACTIONS (3)
  - OEDEMA PERIPHERAL [None]
  - PRURITUS GENERALISED [None]
  - WOUND [None]
